FAERS Safety Report 5620732-7 (Version None)
Quarter: 2008Q1

REPORT INFORMATION
  Report Type: 
  Country: None (occurrence: None)
  Receive Date: 20080208
  Receipt Date: 20080131
  Transmission Date: 20080703
  Serious: Yes (Hospitalization, Other)
  Sender: FDA-Public Use
  Company Number: US-MERCK-0706USA02015

PATIENT
  Age: 57 Year
  Sex: Male

DRUGS (5)
  1. FOSAMAX [Suspect]
     Indication: OSTEOPOROSIS
     Route: 048
     Dates: start: 20020101, end: 20050501
  2. PRILOSEC [Concomitant]
     Indication: DYSPEPSIA
     Route: 065
     Dates: start: 19900101
  3. PREDNISONE [Concomitant]
     Route: 065
  4. MIACALCIN [Concomitant]
     Route: 065
     Dates: start: 20021001, end: 20050501
  5. CALCIUM (UNSPECIFIED) [Concomitant]
     Indication: BONE DENSITY DECREASED
     Route: 065

REACTIONS (21)
  - ASTHENIA [None]
  - ATONIC URINARY BLADDER [None]
  - ATRIAL FIBRILLATION [None]
  - BACTERAEMIA [None]
  - BLOOD PRESSURE INCREASED [None]
  - DEAFNESS [None]
  - DEHYDRATION [None]
  - DENTAL CARIES [None]
  - DIZZINESS [None]
  - FURUNCLE [None]
  - GINGIVAL BLEEDING [None]
  - LIP NEOPLASM [None]
  - MALAISE [None]
  - ORAL PAIN [None]
  - PAIN IN JAW [None]
  - PANCREATITIS [None]
  - PANCREATITIS RELAPSING [None]
  - TEMPOROMANDIBULAR JOINT SYNDROME [None]
  - TONGUE ULCERATION [None]
  - TOOTH LOSS [None]
  - WOUND INFECTION STAPHYLOCOCCAL [None]
